FAERS Safety Report 17727878 (Version 1)
Quarter: 2020Q2

REPORT INFORMATION
  Report Type: Spontaneous
  Country: US (occurrence: US)
  Receive Date: 20200429
  Receipt Date: 20200429
  Transmission Date: 20200714
  Serious: No
  Sender: FDA-Public Use
  Company Number: None

PATIENT
  Age: 60 Year
  Sex: Female
  Weight: 100.35 kg

DRUGS (9)
  1. IRBESARTAN 150MG [Concomitant]
     Active Substance: IRBESARTAN
  2. FUROSEMIDE 20MG [Concomitant]
     Active Substance: FUROSEMIDE
  3. METOPROLOL SUCC ER 50MG [Concomitant]
  4. ONDANSETRON 8MG [Concomitant]
     Active Substance: ONDANSETRON
  5. ASPIRIN 81MG [Concomitant]
     Active Substance: ASPIRIN
  6. DIAZEPAM 5MG [Concomitant]
     Active Substance: DIAZEPAM
  7. DEFERASIROX. [Suspect]
     Active Substance: DEFERASIROX
     Indication: MYELODYSPLASTIC SYNDROME
     Dates: start: 20200409
  8. VENTOLIN HFA [Concomitant]
     Active Substance: ALBUTEROL SULFATE
  9. ANORO ELLIPTA [Concomitant]
     Active Substance: UMECLIDINIUM BROMIDE\VILANTEROL TRIFENATATE

REACTIONS (2)
  - Dysuria [None]
  - Abdominal pain [None]

NARRATIVE: CASE EVENT DATE: 20200429
